FAERS Safety Report 24001604 (Version 1)
Quarter: 2024Q2

REPORT INFORMATION
  Report Type: Spontaneous
  Country: FR (occurrence: FR)
  Receive Date: 20240621
  Receipt Date: 20240621
  Transmission Date: 20240716
  Serious: Yes (Hospitalization)
  Sender: FDA-Public Use
  Company Number: None

PATIENT
  Age: 36 Year
  Sex: Female

DRUGS (14)
  1. BILASTINE [Suspect]
     Active Substance: BILASTINE
     Indication: Depressive symptom
     Route: 065
  2. BUSPIRONE [Suspect]
     Active Substance: BUSPIRONE HYDROCHLORIDE
     Indication: Depressive symptom
     Route: 065
  3. CONCERTA [Suspect]
     Active Substance: METHYLPHENIDATE HYDROCHLORIDE
     Indication: Product used for unknown indication
     Dosage: UP TO 600 MG PER DAY (EITHER ALONE OR IN COMBINATION WITH QUASYM, CONCERTA, MODAFINIL)
     Route: 048
     Dates: start: 202405
  4. DIAZEPAM [Suspect]
     Active Substance: DIAZEPAM
     Indication: Depressive symptom
     Dosage: 20 MG
     Route: 065
  5. BROMAZEPAM [Suspect]
     Active Substance: BROMAZEPAM
     Indication: Depressive symptom
     Dosage: 6MGX 6/D
     Route: 048
     Dates: start: 2024
  6. BROMAZEPAM [Suspect]
     Active Substance: BROMAZEPAM
     Indication: Brain fog
  7. LOXAPINE [Suspect]
     Active Substance: LOXAPINE
     Indication: Depressive symptom
     Dosage: 20 MG, QD AT BED TIME
     Route: 065
  8. MODAFINIL [Suspect]
     Active Substance: MODAFINIL
     Indication: Product used for unknown indication
     Dosage: UP TO 600 MG PER DAY (EITHER ALONE OR IN COMBINATION WITH QUASYM, CONCERTA, MODAFINIL)
     Route: 048
     Dates: start: 202405
  9. NEBIVOLOL [Suspect]
     Active Substance: NEBIVOLOL
     Indication: Depressive symptom
     Route: 065
  10. NICOTINELL [Suspect]
     Active Substance: NICOTINE
     Indication: Depressive symptom
     Route: 065
  11. OLANZAPINE [Suspect]
     Active Substance: OLANZAPINE
     Indication: Insomnia
     Dosage: 5 MG + 5 MG AS NECESSARY
     Route: 065
  12. METHYLPHENIDATE HYDROCHLORIDE [Suspect]
     Active Substance: METHYLPHENIDATE HYDROCHLORIDE
     Indication: Suicide attempt
     Dosage: UP TO 600 MG PER DAY (EITHER ALONE OR IN COMBINATION WITH QUASYM, CONCERTA, MODAFINIL)
     Route: 048
     Dates: start: 202302, end: 20240516
  13. OXAZEPAM [Suspect]
     Active Substance: OXAZEPAM
     Indication: Depressive symptom
     Dosage: 150 MG, 3/DAY
     Route: 048
     Dates: start: 202405
  14. COCAINE [Concomitant]
     Active Substance: COCAINE
     Indication: Suicide attempt
     Dosage: 4 G, 4G PER DAY 2-4 TIMES PER WEEK
     Route: 065
     Dates: start: 202210

REACTIONS (5)
  - Toxicity to various agents [Unknown]
  - Drug use disorder [Recovering/Resolving]
  - Intentional product misuse [Unknown]
  - Off label use [Recovered/Resolved]
  - Drug intolerance [Recovered/Resolved]

NARRATIVE: CASE EVENT DATE: 20240518
